FAERS Safety Report 8212531-7 (Version None)
Quarter: 2012Q1

REPORT INFORMATION
  Report Type: 
  Country: None (occurrence: None)
  Receive Date: 20120315
  Receipt Date: 20120312
  Transmission Date: 20120608
  Serious: Yes (Death)
  Sender: FDA-Public Use
  Company Number: DE-GLAXOSMITHKLINE-D0074845A

PATIENT
  Age: 78 Year
  Sex: Female
  Weight: 80 kg

DRUGS (4)
  1. TAZOBACTAM [Concomitant]
     Indication: INFECTION
     Dosage: 4.5G PER DAY
     Route: 042
     Dates: start: 20120106, end: 20120109
  2. ACTRAPID [Concomitant]
     Indication: DIABETES MELLITUS
     Route: 058
  3. ASPIRIN [Concomitant]
     Indication: ARTERIOSCLEROSIS
     Dosage: 100MG PER DAY
     Route: 048
     Dates: start: 20120109
  4. ARIXTRA [Suspect]
     Indication: THROMBOSIS PROPHYLAXIS
     Dosage: 2.5MG PER DAY
     Route: 058
     Dates: start: 20120106, end: 20120109

REACTIONS (2)
  - SHOCK HAEMORRHAGIC [None]
  - RETROPERITONEAL HAEMATOMA [None]
